FAERS Safety Report 21142827 (Version 1)
Quarter: 2022Q3

REPORT INFORMATION
  Report Type: Spontaneous
  Country: US (occurrence: None)
  Receive Date: 20220728
  Receipt Date: 20220728
  Transmission Date: 20221026
  Serious: Yes (Death, Life-Threatening, Hospitalization)
  Sender: FDA-Public Use
  Company Number: None

PATIENT
  Age: 90 Year
  Sex: Female

DRUGS (1)
  1. CITROMA [Suspect]
     Active Substance: MAGNESIUM CITRATE
     Indication: Constipation
     Route: 048
     Dates: start: 20220428, end: 20220428

REACTIONS (6)
  - Diarrhoea [None]
  - Unresponsive to stimuli [None]
  - Sepsis [None]
  - Incoherent [None]
  - Feeling abnormal [None]
  - Hypophagia [None]

NARRATIVE: CASE EVENT DATE: 20220428
